FAERS Safety Report 8807624 (Version 2)
Quarter: 2012Q4

REPORT INFORMATION
  Report Type: 
  Country: US (occurrence: US)
  Receive Date: 20120925
  Receipt Date: 20121105
  Transmission Date: 20130627
  Serious: Yes (Other)
  Sender: FDA-Public Use
  Company Number: US-PFIZER INC-2012232567

PATIENT
  Age: 54 Year
  Sex: Female
  Weight: 76.2 kg

DRUGS (4)
  1. PRISTIQ [Suspect]
     Indication: DEPRESSION
     Dosage: 100 mg, daily
     Dates: start: 200909
  2. PRISTIQ [Suspect]
     Dosage: 50 mg, UNK
  3. ARIMIDEX [Concomitant]
     Indication: BREAST CANCER FEMALE
     Dosage: 1 mg, daily
  4. ATIVAN [Concomitant]
     Indication: ANXIETY
     Dosage: 1 mg, daily

REACTIONS (6)
  - Feeling abnormal [Not Recovered/Not Resolved]
  - Paraesthesia [Unknown]
  - Decreased interest [Not Recovered/Not Resolved]
  - Apathy [Not Recovered/Not Resolved]
  - Drug ineffective [Unknown]
  - Dizziness [Unknown]
